FAERS Safety Report 5330915-1 (Version None)
Quarter: 2007Q2

REPORT INFORMATION
  Report Type: 
  Country: None (occurrence: None)
  Receive Date: 20070522
  Receipt Date: 20070509
  Transmission Date: 20071010
  Serious: Yes (Other)
  Sender: FDA-Public Use
  Company Number: JP-ELI_LILLY_AND_COMPANY-JP200705002947

PATIENT
  Age: 71 Year
  Sex: Female
  Weight: 55.7 kg

DRUGS (22)
  1. PEMETREXED [Suspect]
     Indication: PLEURAL MESOTHELIOMA MALIGNANT
     Dosage: 500 MG/M2, OTHER
     Route: 042
     Dates: start: 20070206, end: 20070417
  2. CISPLATIN [Suspect]
     Indication: PLEURAL MESOTHELIOMA MALIGNANT
     Dosage: 60 MG/M2, OTHER
     Route: 042
     Dates: start: 20070206, end: 20070206
  3. CISPLATIN [Suspect]
     Dosage: 75 MG/M2, OTHER
     Route: 042
     Dates: start: 20070227, end: 20070417
  4. PANVITAN [Concomitant]
     Dosage: 0.5 MG, DAILY (1/D)
     Route: 048
     Dates: start: 20070130
  5. CYANOCOBALAMIN [Concomitant]
     Dosage: 1 MG, UNK
     Route: 030
     Dates: start: 20070130
  6. DIOVAN [Concomitant]
     Indication: HYPERTENSION
     Dosage: 160 MG, DAILY (1/D)
     Route: 048
  7. NORVASC [Concomitant]
     Indication: HYPERTENSION
     Dosage: 10 MG, DAILY (1/D)
     Route: 048
  8. UBRETID [Concomitant]
     Indication: NEUROGENIC BLADDER
     Dosage: 10 MG, DAILY (1/D)
     Route: 048
  9. PAXIL [Concomitant]
     Indication: MAJOR DEPRESSION
     Dosage: 20 MG, DAILY (1/D)
     Route: 048
  10. TOLEDOMIN [Concomitant]
     Indication: MAJOR DEPRESSION
     Dosage: 15 MG, DAILY (1/D)
     Route: 048
     Dates: end: 20070205
  11. MAGNESIUM OXIDE [Concomitant]
     Indication: CONSTIPATION
     Dosage: 3 G, DAILY (1/D)
     Route: 048
     Dates: end: 20070212
  12. MUCOSTA [Concomitant]
     Indication: PROPHYLAXIS
     Dosage: 100 MG, DAILY (1/D)
     Route: 048
  13. PURSENNID [Concomitant]
     Indication: CONSTIPATION
     Dosage: 12 MG, DAILY (1/D)
     Route: 048
     Dates: start: 20070201
  14. CODEINE PHOSPHATE [Concomitant]
     Indication: COUGH
     Dosage: 20 MG, DAILY (1/D)
     Route: 048
     Dates: start: 20070206, end: 20070209
  15. PRIMPERAN /SCH/ [Concomitant]
     Indication: NAUSEA
     Dosage: 5 MG, DAILY (1/D)
     Route: 048
     Dates: start: 20070208
  16. LOPEMIN [Concomitant]
     Indication: DIARRHOEA
     Dosage: 1 MG, DAILY (1/D)
     Route: 048
     Dates: start: 20070210, end: 20070212
  17. KENEI ENEMA [Concomitant]
     Indication: CONSTIPATION
     Dosage: 60 ML, DAILY (1/D)
     Route: 054
     Dates: start: 20070212, end: 20070212
  18. MAGLAX [Concomitant]
     Indication: CONSTIPATION
     Dosage: 750 MG, DAILY (1/D)
     Route: 048
     Dates: start: 20070213
  19. TELEMINSOFT [Concomitant]
     Indication: CONSTIPATION
     Dosage: 10 MG, DAILY (1/D)
     Route: 054
     Dates: start: 20070220, end: 20070220
  20. BIOFERMIN [Concomitant]
     Indication: DIARRHOEA
     Dosage: 3 G, DAILY (1/D)
     Route: 048
     Dates: start: 20070226
  21. CIBENOL [Concomitant]
     Indication: ARRHYTHMIA PROPHYLAXIS
     Dosage: 50 MG, 3/D
     Route: 048
     Dates: start: 20070320, end: 20070330
  22. CIBENOL [Concomitant]
     Dosage: 50 MG, 3/D
     Route: 048
     Dates: start: 20070416, end: 20070426

REACTIONS (1)
  - ATRIAL FIBRILLATION [None]
